FAERS Safety Report 5411531-X (Version None)
Quarter: 2007Q3

REPORT INFORMATION
  Report Type: 
  Country: None (occurrence: None)
  Receive Date: 20070810
  Receipt Date: 20070806
  Transmission Date: 20080115
  Serious: Yes (Other)
  Sender: FDA-Public Use
  Company Number: TR-ROXANE LABORATORIES, INC-2007-BP-18643RO

PATIENT
  Age: 55 Year
  Sex: Male

DRUGS (5)
  1. DEXAMETHASONE 0.5MG TAB [Suspect]
     Indication: MULTIPLE MYELOMA
  2. DEXAMETHASONE 0.5MG TAB [Suspect]
     Route: 048
  3. THALIDOMIDE [Suspect]
     Indication: MULTIPLE MYELOMA
     Route: 048
  4. VINCRISTINE [Suspect]
     Indication: MULTIPLE MYELOMA
  5. DOXORUBICIN [Suspect]
     Indication: MULTIPLE MYELOMA

REACTIONS (8)
  - ASPARTATE AMINOTRANSFERASE INCREASED [None]
  - BLOOD CREATINE PHOSPHOKINASE INCREASED [None]
  - BLOOD CREATININE INCREASED [None]
  - BLOOD LACTATE DEHYDROGENASE INCREASED [None]
  - DRUG INEFFECTIVE [None]
  - MYALGIA [None]
  - MYOGLOBINURIA [None]
  - RHABDOMYOLYSIS [None]
